FAERS Safety Report 5231383-0 (Version None)
Quarter: 2007Q1

REPORT INFORMATION
  Report Type: 
  Country: None (occurrence: None)
  Receive Date: 20070205
  Receipt Date: 20070205
  Transmission Date: 20070707
  Serious: No
  Sender: FDA-Public Use
  Company Number: None

PATIENT
  Age: 53 Year
  Sex: Male

DRUGS (10)
  1. FENOFIBRATE [Suspect]
     Dates: start: 20051102, end: 20060129
  2. ISONIAZID [Suspect]
     Dates: start: 20051202, end: 20060129
  3. PYRIDOXINE HCL [Concomitant]
  4. ACCUPRIL [Concomitant]
  5. PENTOXIFYLLINE [Concomitant]
  6. FELODIPINE [Concomitant]
  7. METOPROLOL SUCCINATE [Concomitant]
  8. ZETIA [Concomitant]
  9. CIPRO [Concomitant]
  10. NIASPAN [Concomitant]

REACTIONS (11)
  - ALANINE AMINOTRANSFERASE INCREASED [None]
  - AMMONIA INCREASED [None]
  - ASPARTATE AMINOTRANSFERASE INCREASED [None]
  - BLOOD ALKALINE PHOSPHATASE INCREASED [None]
  - BLOOD BILIRUBIN INCREASED [None]
  - BLOOD GLUCOSE INCREASED [None]
  - EPIDIDYMITIS [None]
  - LIVER INJURY [None]
  - SOMNOLENCE [None]
  - TUBERCULOSIS SKIN TEST POSITIVE [None]
  - WEIGHT DECREASED [None]
